FAERS Safety Report 9814382 (Version 2)
Quarter: 2014Q1

REPORT INFORMATION
  Report Type: Spontaneous
  Country: IT (occurrence: IT)
  Receive Date: 20140113
  Receipt Date: 20140113
  Transmission Date: 20141002
  Serious: Yes (Life-Threatening, Other)
  Sender: FDA-Public Use
  Company Number: IT-ABBVIE-12P-083-0908928-00

PATIENT
  Age: 73 Year
  Sex: Female

DRUGS (6)
  1. CALCITRIOLO [Suspect]
     Indication: HYPOCALCAEMIA
     Dates: start: 20110301, end: 20110601
  2. CALCITRIOLO [Suspect]
     Dates: end: 20120201
  3. CALCIUM CARBONATE [Suspect]
     Indication: HYPOCALCAEMIA
     Dates: start: 20110701, end: 20120201
  4. CALCIUM CARBONATE [Suspect]
     Dates: end: 20110601
  5. KEPRA [Concomitant]
     Indication: PRODUCT USED FOR UNKNOWN INDICATION
     Route: 048
     Dates: start: 20110601
  6. CARDIOASPIRINA [Concomitant]
     Indication: PRODUCT USED FOR UNKNOWN INDICATION

REACTIONS (6)
  - Coma [Recovered/Resolved with Sequelae]
  - Convulsion [Recovered/Resolved with Sequelae]
  - Hypercalcaemia [Recovered/Resolved with Sequelae]
  - Femur fracture [Unknown]
  - Hypercalcaemia [Recovered/Resolved]
  - Convulsion [Recovered/Resolved]
